FAERS Safety Report 7494565-3 (Version None)
Quarter: 2011Q2

REPORT INFORMATION
  Report Type: 
  Country: None (occurrence: None)
  Receive Date: 20110520
  Receipt Date: 20110510
  Transmission Date: 20111010
  Serious: Yes (Other)
  Sender: FDA-Public Use
  Company Number: PHFR2011GB02998

PATIENT
  Sex: Male

DRUGS (1)
  1. TASIGNA [Suspect]
     Indication: CHRONIC MYELOID LEUKAEMIA
     Dosage: 400 MG, BID

REACTIONS (4)
  - GASTROINTESTINAL HAEMORRHAGE [None]
  - ARRHYTHMIA [None]
  - HAEMOGLOBIN DECREASED [None]
  - CEREBRAL HAEMORRHAGE [None]
